FAERS Safety Report 9105150 (Version 2)
Quarter: 2013Q1

REPORT INFORMATION
  Report Type: Report from Study
  Country: US (occurrence: US)
  Receive Date: 20130220
  Receipt Date: 20130308
  Transmission Date: 20140127
  Serious: Yes (Hospitalization)
  Sender: FDA-Public Use
  Company Number: US-AMGEN-USACT2013008083

PATIENT
  Age: 60 Year
  Sex: Male
  Weight: 74.2 kg

DRUGS (20)
  1. PANITUMUMAB [Suspect]
     Indication: NON-SMALL CELL LUNG CANCER
     Dosage: 598 MG, UNK
     Route: 042
     Dates: start: 20121010, end: 20130114
  2. PEMETREXED [Concomitant]
     Indication: NON-SMALL CELL LUNG CANCER
     Dosage: 1015 MG, UNK
     Route: 042
     Dates: start: 20121010, end: 20130114
  3. CARBOPLATIN [Concomitant]
     Indication: NON-SMALL CELL LUNG CANCER
     Dosage: 421 MG, UNK
     Route: 042
     Dates: start: 20121010, end: 20130114
  4. FOLIC ACID [Concomitant]
     Dosage: 1 MG, UNK
     Route: 048
     Dates: start: 20120910, end: 20130129
  5. VITAMIN B12 [Concomitant]
     Dosage: 1000 MUG, UNK
     Route: 058
     Dates: start: 20120920, end: 20121211
  6. OXYCODONE [Concomitant]
     Indication: PROCEDURAL PAIN
     Dosage: UNK UNK, AS NECESSARY
     Dates: start: 201207
  7. TAMSULOSIN [Concomitant]
     Indication: BENIGN PROSTATIC HYPERPLASIA
     Dosage: 0.4 MG, QD
  8. METOPROLOL [Concomitant]
     Indication: HYPERTENSION
     Dosage: 25 MG, BID
     Dates: start: 201208
  9. FLUTICASONE PROPIONATE W/SALMETEROL [Concomitant]
     Indication: CHRONIC OBSTRUCTIVE PULMONARY DISEASE
     Dosage: UNK UNK, BID
     Dates: start: 20121001
  10. PROAIR [Concomitant]
     Indication: CHRONIC OBSTRUCTIVE PULMONARY DISEASE
     Dosage: UNK UNK, AS NECESSARY
     Dates: start: 20121001
  11. ZOFRAN [Concomitant]
     Indication: NAUSEA
     Dosage: 8 MG, AS NECESSARY
     Dates: start: 20120910
  12. PROMETHAZINE [Concomitant]
     Indication: NAUSEA
     Dosage: 25 MG, AS NECESSARY
     Dates: start: 20120910
  13. LIPITOR [Concomitant]
     Indication: HYPERCHOLESTEROLAEMIA
     Dosage: 10 MG, QD
     Dates: start: 201208
  14. DULCOLAX [Concomitant]
     Indication: CONSTIPATION
     Dosage: 10 MG, AS NECESSARY
     Dates: start: 201208
  15. COLACE [Concomitant]
     Indication: CONSTIPATION
     Dosage: 100 MG, BID
     Dates: start: 201208
  16. EMEND [Concomitant]
     Indication: NAUSEA
     Dosage: UNK UNK, AS NECESSARY
     Dates: start: 20121020
  17. MAGNESIUM OXIDE [Concomitant]
     Indication: HYPOMAGNESAEMIA
     Dosage: 500 MG, BID
     Dates: start: 20121121
  18. POTASSIUM [Concomitant]
     Indication: HYPOKALAEMIA
     Dosage: 10 MG, QD
     Dates: start: 20121121
  19. PREDNISONE [Concomitant]
     Indication: DYSPNOEA
     Dosage: 15 MG, QD
     Dates: start: 20130104
  20. IRON [Concomitant]
     Indication: ANAEMIA
     Dosage: 325 MG, QD
     Dates: start: 20121212

REACTIONS (2)
  - Pancytopenia [Recovered/Resolved]
  - Convulsion [Recovered/Resolved]
